FAERS Safety Report 4293672-6 (Version None)
Quarter: 2004Q1

REPORT INFORMATION
  Report Type: 
  Country: None (occurrence: None)
  Receive Date: 20040212
  Receipt Date: 20040203
  Transmission Date: 20041129
  Serious: Yes (Hospitalization)
  Sender: FDA-Public Use
  Company Number: 200410454FR

PATIENT
  Age: 81 Year
  Sex: Female

DRUGS (2)
  1. TRIATEC [Suspect]
     Route: 048
  2. LASILIX [Suspect]
     Route: 048

REACTIONS (4)
  - BLOOD ALBUMIN INCREASED [None]
  - DEHYDRATION [None]
  - HYPERKALAEMIA [None]
  - RENAL FAILURE ACUTE [None]
